FAERS Safety Report 19654139 (Version 2)
Quarter: 2021Q3

REPORT INFORMATION
  Report Type: Spontaneous
  Country: HR (occurrence: HR)
  Receive Date: 20210803
  Receipt Date: 20210915
  Transmission Date: 20211014
  Serious: Yes (Other)
  Sender: FDA-Public Use
  Company Number: HR-ROCHE-2878570

PATIENT
  Sex: Female

DRUGS (7)
  1. CONCOR [Concomitant]
     Active Substance: BISOPROLOL FUMARATE
     Dosage: 5 MG 1X1 TABLET
  2. MARTEFARIN [Concomitant]
     Active Substance: WARFARIN
     Dosage: 1X3.5 TABLET
  3. ALDACTONE A [Concomitant]
     Active Substance: SPIRONOLACTONE
     Dosage: 1X1 DAILY
  4. EDEMID [Concomitant]
     Active Substance: FUROSEMIDE
     Dosage: 1X1 / 2 TABLET
  5. ZEPATIER [Suspect]
     Active Substance: ELBASVIR\GRAZOPREVIR
     Indication: PRODUCT USED FOR UNKNOWN INDICATION
     Route: 048
     Dates: start: 201803
  6. CONCOR [Concomitant]
     Active Substance: BISOPROLOL FUMARATE
     Dosage: 1.25 MG 1X1 TABLET
  7. RIBAVIRIN. [Suspect]
     Active Substance: RIBAVIRIN
     Indication: PRODUCT USED FOR UNKNOWN INDICATION
     Route: 048
     Dates: start: 201803

REACTIONS (4)
  - Abnormal loss of weight [Unknown]
  - Intracranial aneurysm [Unknown]
  - Diabetes mellitus [Unknown]
  - Subdural hygroma [Unknown]

NARRATIVE: CASE EVENT DATE: 2020
